FAERS Safety Report 18068131 (Version 3)
Quarter: 2023Q2

REPORT INFORMATION
  Report Type: Spontaneous
  Country: US (occurrence: US)
  Receive Date: 20200724
  Receipt Date: 20230504
  Transmission Date: 20230721
  Serious: Yes (Other)
  Sender: FDA-Public Use
  Company Number: US-GILEAD-2020-0485178

PATIENT
  Sex: Female
  Weight: 142.86 kg

DRUGS (24)
  1. TRUVADA [Suspect]
     Active Substance: EMTRICITABINE\TENOFOVIR DISOPROXIL FUMARATE
     Indication: HIV infection
     Dosage: UNK
     Route: 048
     Dates: start: 2001
  2. TRUVADA [Suspect]
     Active Substance: EMTRICITABINE\TENOFOVIR DISOPROXIL FUMARATE
     Dosage: UNK
     Route: 048
     Dates: start: 2005, end: 201605
  3. TRUVADA [Suspect]
     Active Substance: EMTRICITABINE\TENOFOVIR DISOPROXIL FUMARATE
     Dosage: UNK
     Route: 048
     Dates: start: 2012, end: 201605
  4. VIREAD [Suspect]
     Active Substance: TENOFOVIR DISOPROXIL FUMARATE
     Indication: HIV infection
     Dosage: UNK
     Route: 048
     Dates: start: 2001
  5. VIREAD [Suspect]
     Active Substance: TENOFOVIR DISOPROXIL FUMARATE
     Dosage: UNK
     Route: 048
     Dates: start: 2002, end: 2005
  6. VIREAD [Suspect]
     Active Substance: TENOFOVIR DISOPROXIL FUMARATE
     Dosage: UNK
     Route: 048
     Dates: start: 2002, end: 2012
  7. GENVOYA [Concomitant]
     Active Substance: COBICISTAT\ELVITEGRAVIR\EMTRICITABINE\TENOFOVIR ALAFENAMIDE FUMARATE
  8. EPIVIR [Concomitant]
     Active Substance: LAMIVUDINE
  9. ISENTRESS [Concomitant]
     Active Substance: RALTEGRAVIR POTASSIUM
  10. KALETRA [Concomitant]
     Active Substance: LOPINAVIR\RITONAVIR
  11. NORVIR [Concomitant]
     Active Substance: RITONAVIR
  12. PREZISTA [Concomitant]
     Active Substance: DARUNAVIR ETHANOLATE
  13. RETROVIR [Concomitant]
     Active Substance: ZIDOVUDINE
  14. REYATAZ [Concomitant]
     Active Substance: ATAZANAVIR SULFATE
  15. SUSTIVA [Concomitant]
     Active Substance: EFAVIRENZ
  16. VIDEX EC [Concomitant]
     Active Substance: DIDANOSINE
  17. ZIAGEN [Concomitant]
     Active Substance: ABACAVIR SULFATE
  18. ZERIT [Concomitant]
     Active Substance: STAVUDINE
  19. ALBUTEROL [Concomitant]
     Active Substance: ALBUTEROL
  20. FELODIPINE [Concomitant]
     Active Substance: FELODIPINE
  21. FLUTICASONE [Concomitant]
     Active Substance: FLUTICASONE
  22. GABAPENTIN [Concomitant]
     Active Substance: GABAPENTIN
  23. HYDROCHLOROTHIAZIDE [Concomitant]
     Active Substance: HYDROCHLOROTHIAZIDE
  24. PRAVASTATIN [Concomitant]
     Active Substance: PRAVASTATIN

REACTIONS (9)
  - Osteoporosis [Not Recovered/Not Resolved]
  - Emotional distress [Not Recovered/Not Resolved]
  - Anxiety [Not Recovered/Not Resolved]
  - Anhedonia [Not Recovered/Not Resolved]
  - Gait disturbance [Not Recovered/Not Resolved]
  - Loss of personal independence in daily activities [Not Recovered/Not Resolved]
  - Depression [Not Recovered/Not Resolved]
  - Pain [Not Recovered/Not Resolved]
  - Arthritis [Unknown]

NARRATIVE: CASE EVENT DATE: 20090101
